FAERS Safety Report 25592262 (Version 2)
Quarter: 2025Q3

REPORT INFORMATION
  Report Type: Spontaneous
  Country: GB (occurrence: GB)
  Receive Date: 20250722
  Receipt Date: 20250731
  Transmission Date: 20251020
  Serious: Yes (Death, Life-Threatening, Hospitalization, Other)
  Sender: GILEAD
  Company Number: GB-GILEAD-2025-0719705

PATIENT
  Age: 71 Year
  Sex: Female

DRUGS (1)
  1. TECARTUS [Suspect]
     Active Substance: BREXUCABTAGENE AUTOLEUCEL
     Indication: Mantle cell lymphoma recurrent
     Route: 065
     Dates: start: 20250624, end: 20250624

REACTIONS (14)
  - Multiple organ dysfunction syndrome [Fatal]
  - Immune effector cell-associated HLH-like syndrome [Fatal]
  - Cytokine release syndrome [Recovered/Resolved]
  - Immune effector cell-associated neurotoxicity syndrome [Unknown]
  - Liver injury [Unknown]
  - Arrhythmia [Unknown]
  - Liver injury [Unknown]
  - Disseminated intravascular coagulation [Unknown]
  - Hyperkalaemia [Unknown]
  - Renal failure [Unknown]
  - Cardioversion [Unknown]
  - Serum ferritin increased [Unknown]
  - Blood fibrinogen decreased [Unknown]
  - Blood lactate dehydrogenase increased [Unknown]

NARRATIVE: CASE EVENT DATE: 20250630
